FAERS Safety Report 25626816 (Version 1)
Quarter: 2025Q3

REPORT INFORMATION
  Report Type: Spontaneous
  Country: US (occurrence: US)
  Receive Date: 20250731
  Receipt Date: 20250731
  Transmission Date: 20251020
  Serious: No
  Sender: COHERUS
  Company Number: US-COHERUS BIOSCIENCES, INC-2025-COH-US000669

PATIENT

DRUGS (2)
  1. UDENYCA [Suspect]
     Active Substance: PEGFILGRASTIM-CBQV
     Indication: Breast cancer
     Dosage: 6 MG, Q3WEEKS
     Route: 058
     Dates: start: 20250605
  2. UDENYCA [Suspect]
     Active Substance: PEGFILGRASTIM-CBQV
     Dosage: 6 MG, Q3WEEKS
     Route: 058
     Dates: start: 20250626

REACTIONS (2)
  - Device malfunction [Unknown]
  - Product dose omission issue [Not Recovered/Not Resolved]

NARRATIVE: CASE EVENT DATE: 20250718
